FAERS Safety Report 12341650 (Version 1)
Quarter: 2016Q2

REPORT INFORMATION
  Report Type: Spontaneous
  Country: US (occurrence: None)
  Receive Date: 20160505
  Receipt Date: 20160505
  Transmission Date: 20160815
  Serious: No
  Sender: FDA-Public Use
  Company Number: None

PATIENT
  Age: 44 Year
  Sex: Female

DRUGS (1)
  1. HUMIRA [Suspect]
     Active Substance: ADALIMUMAB
     Dosage: 40 MG EVERY 21 DAYS SQ
     Route: 058
     Dates: start: 20160101

REACTIONS (3)
  - Musculoskeletal stiffness [None]
  - Neck pain [None]
  - Tenderness [None]

NARRATIVE: CASE EVENT DATE: 20160403
